FAERS Safety Report 23305255 (Version 2)
Quarter: 2024Q1

REPORT INFORMATION
  Report Type: Spontaneous
  Country: US (occurrence: None)
  Receive Date: 20231218
  Receipt Date: 20240131
  Transmission Date: 20240409
  Serious: Yes (Other)
  Sender: FDA-Public Use
  Company Number: 2023A282736

PATIENT

DRUGS (2)
  1. DURVALUMAB [Suspect]
     Active Substance: DURVALUMAB
     Indication: Hepatocellular carcinoma
     Route: 041
  2. TREMELIMUMAB [Concomitant]
     Active Substance: TREMELIMUMAB
     Indication: Hepatocellular carcinoma
     Dosage: 300.0MG ONCE/SINGLE ADMINISTRATION
     Route: 041

REACTIONS (2)
  - Hepatitis [Recovered/Resolved]
  - Colitis [Recovered/Resolved]
